FAERS Safety Report 5415993-3 (Version None)
Quarter: 2007Q3

REPORT INFORMATION
  Report Type: 
  Country: None (occurrence: None)
  Receive Date: 20070815
  Receipt Date: 20070807
  Transmission Date: 20080115
  Serious: Yes (Other)
  Sender: FDA-Public Use
  Company Number: GB-PFIZER INC-2007066385

PATIENT
  Age: 52 Year
  Sex: Female

DRUGS (2)
  1. VARENICLINE TABLETS [Suspect]
     Route: 048
  2. PROPRANOLOL [Concomitant]

REACTIONS (2)
  - PERIPHERAL COLDNESS [None]
  - RAYNAUD'S PHENOMENON [None]
